FAERS Safety Report 24696070 (Version 1)
Quarter: 2024Q4

REPORT INFORMATION
  Report Type: Spontaneous
  Country: US (occurrence: US)
  Receive Date: 20241204
  Receipt Date: 20241204
  Transmission Date: 20250115
  Serious: Yes (Hospitalization, Other)
  Sender: HIKMA
  Company Number: US-MLMSERVICE-20241115-PI255230-00099-3

PATIENT
  Age: 82 Year
  Sex: Male

DRUGS (10)
  1. AZACITIDINE [Suspect]
     Active Substance: AZACITIDINE
     Indication: Myelodysplastic syndrome
     Dosage: 160 MILLIGRAM, QD
     Route: 042
  2. CEFEPIME [Suspect]
     Active Substance: CEFEPIME HYDROCHLORIDE
     Indication: Pseudomonas infection
     Dosage: 1 GRAM, Q8H
     Route: 042
  3. CEFEPIME [Suspect]
     Active Substance: CEFEPIME HYDROCHLORIDE
     Indication: Catheter site infection
     Dosage: 1000 MILLIGRAM, Q8H
     Route: 042
  4. CEFEPIME [Suspect]
     Active Substance: CEFEPIME HYDROCHLORIDE
     Indication: Antibiotic prophylaxis
  5. CIPROFLOXACIN [Suspect]
     Active Substance: CIPROFLOXACIN
     Indication: Catheter site infection
     Dosage: 500 MILLIGRAM, Q12H
     Route: 065
  6. CIPROFLOXACIN [Suspect]
     Active Substance: CIPROFLOXACIN
     Indication: Pseudomonas infection
     Dosage: UNK
     Route: 048
  7. CIPROFLOXACIN [Suspect]
     Active Substance: CIPROFLOXACIN
     Indication: Antibiotic prophylaxis
  8. ACYCLOVIR [Concomitant]
     Active Substance: ACYCLOVIR
     Indication: Antiviral prophylaxis
     Route: 048
  9. OXYGEN [Concomitant]
     Active Substance: OXYGEN
     Indication: Respiratory failure
     Dosage: UNK
     Route: 065
  10. POSACONAZOLE [Concomitant]
     Active Substance: POSACONAZOLE
     Indication: Antifungal prophylaxis
     Dosage: 300 MILLIGRAM, QD
     Route: 065

REACTIONS (5)
  - Pneumonia [Recovered/Resolved]
  - Corynebacterium bacteraemia [Recovered/Resolved]
  - Lung consolidation [Unknown]
  - Neutropenia [Unknown]
  - Catheter site infection [Unknown]
